FAERS Safety Report 8881174 (Version 2)
Quarter: 2013Q2

REPORT INFORMATION
  Report Type: Report from Study
  Country: US (occurrence: US)
  Receive Date: 20121031
  Receipt Date: 20130628
  Transmission Date: 20140414
  Serious: Yes (Hospitalization, Other)
  Sender: FDA-Public Use
  Company Number: PHEH2012US014991

PATIENT
  Age: 54 Year
  Sex: Male

DRUGS (5)
  1. TOBI [Suspect]
     Indication: CYSTIC FIBROSIS
     Dosage: 300 MG, BID
     Dates: start: 20120605
  2. TOBI [Suspect]
     Dosage: 112 UNK, UNK
     Dates: start: 20130525, end: 20130529
  3. PULMOZYME [Concomitant]
     Dosage: UNK UKN, UNK
  4. ADVAIR [Concomitant]
     Dosage: UNK UKN, UNK
  5. ALBUTEROL [Concomitant]
     Dosage: UNK UKN, UNK

REACTIONS (13)
  - Dyspnoea [Recovered/Resolved]
  - Lung infection [Recovered/Resolved]
  - Haemoptysis [Recovered/Resolved]
  - Increased viscosity of nasal secretion [Recovered/Resolved]
  - Dysphonia [Not Recovered/Not Resolved]
  - Asthma [Not Recovered/Not Resolved]
  - Respiratory tract irritation [Not Recovered/Not Resolved]
  - Cough [Recovering/Resolving]
  - Deafness unilateral [Recovering/Resolving]
  - Dizziness [Recovering/Resolving]
  - Tinnitus [Recovering/Resolving]
  - Rash [Recovering/Resolving]
  - Drug effect incomplete [Unknown]
